FAERS Safety Report 19656403 (Version 1)
Quarter: 2021Q3

REPORT INFORMATION
  Report Type: Spontaneous
  Country: US (occurrence: US)
  Receive Date: 20210804
  Receipt Date: 20210804
  Transmission Date: 20211014
  Serious: No
  Sender: FDA-Public Use
  Company Number: None

PATIENT
  Age: 59 Year
  Sex: Female
  Weight: 104.8 kg

DRUGS (1)
  1. CASIRIVIMAB AND IMDEVIMAB) [Suspect]
     Active Substance: CASIRIVIMAB\IMDEVIMAB
     Indication: COVID-19
     Dosage: ?          OTHER FREQUENCY:ONCE;?
     Route: 040
     Dates: start: 20210803, end: 20210803

REACTIONS (7)
  - Chest discomfort [None]
  - Erythema [None]
  - Feeling abnormal [None]
  - Infusion related reaction [None]
  - Chest pain [None]
  - Hypoxia [None]
  - Urticaria [None]

NARRATIVE: CASE EVENT DATE: 20210803
